FAERS Safety Report 9282406 (Version 1)
Quarter: 2013Q2

REPORT INFORMATION
  Report Type: Spontaneous
  Country: US (occurrence: None)
  Receive Date: 20130506
  Receipt Date: 20130506
  Transmission Date: 20140414
  Serious: Yes (Hospitalization, Other)
  Sender: FDA-Public Use
  Company Number: 2013P1005191

PATIENT
  Age: 36 Year
  Sex: Female
  Weight: 53.1 kg

DRUGS (3)
  1. PHENOBARBITAL [Suspect]
     Indication: CONVULSION
  2. PHENYTOIN [Suspect]
     Indication: CONVULSION
  3. VALPROIC ACID [Suspect]
     Indication: CONVULSION
     Route: 048

REACTIONS (3)
  - Staphylococcus test positive [None]
  - Drug reaction with eosinophilia and systemic symptoms [None]
  - Hepatic failure [None]
